FAERS Safety Report 5066263-7 (Version None)
Quarter: 2006Q3

REPORT INFORMATION
  Report Type: 
  Country: None (occurrence: None)
  Receive Date: 20060706
  Receipt Date: 20051108
  Transmission Date: 20061208
  Serious: Yes (Life-Threatening, Hospitalization)
  Sender: FDA-Public Use
  Company Number: 2048

PATIENT
  Sex: Male

DRUGS (1)
  1. AVINZA [Suspect]
     Indication: SUICIDE ATTEMPT
     Dosage: PO
     Route: 048

REACTIONS (2)
  - OVERDOSE [None]
  - SUICIDE ATTEMPT [None]
